FAERS Safety Report 9534848 (Version 1)
Quarter: 2013Q3

REPORT INFORMATION
  Report Type: Spontaneous
  Country: US (occurrence: US)
  Receive Date: 20130918
  Receipt Date: 20130918
  Transmission Date: 20140515
  Serious: Yes (Other)
  Sender: FDA-Public Use
  Company Number: US-NAPPMUNDI-USA-2011-0080188

PATIENT
  Sex: Female

DRUGS (1)
  1. BUTRANS [Suspect]
     Indication: PAIN
     Dosage: 20 MCG, Q1H
     Dates: start: 20111217

REACTIONS (6)
  - Overdose [Recovering/Resolving]
  - Incoherent [Recovering/Resolving]
  - Mental status changes [Recovering/Resolving]
  - Altered state of consciousness [Recovering/Resolving]
  - Fatigue [Recovering/Resolving]
  - Unresponsive to stimuli [Recovering/Resolving]
